FAERS Safety Report 6087703-0 (Version None)
Quarter: 2009Q1

REPORT INFORMATION
  Report Type: 
  Country: None (occurrence: None)
  Receive Date: 20090223
  Receipt Date: 20090209
  Transmission Date: 20090719
  Serious: Yes (Hospitalization)
  Sender: FDA-Public Use
  Company Number: US-ROCHE-613507

PATIENT
  Sex: Female

DRUGS (11)
  1. CAPECITABINE [Suspect]
     Indication: BREAST CANCER
     Route: 048
     Dates: start: 20081125, end: 20081209
  2. COMPAZINE [Concomitant]
     Route: 048
     Dates: start: 20081207
  3. IMODIUM [Concomitant]
     Route: 048
     Dates: start: 20081209
  4. ZOMETA [Concomitant]
     Route: 042
     Dates: start: 20070413
  5. UNISOM [Concomitant]
     Indication: INSOMNIA
     Route: 048
     Dates: start: 20060101
  6. ALBUTEROL [Concomitant]
     Dates: start: 20081217
  7. ENCAPRIN [Concomitant]
     Dosage: DRUG: ENCXAPARIN.
     Dates: start: 20081216
  8. HYDROCODONE [Concomitant]
     Dates: start: 20081216
  9. IPRATROPIUM BROMIDE [Concomitant]
     Dates: start: 20081216
  10. LORAZEPAM [Concomitant]
     Route: 048
     Dates: start: 20081216
  11. OXYCODONE [Concomitant]
     Route: 048
     Dates: start: 20081216

REACTIONS (2)
  - ACUTE RESPIRATORY FAILURE [None]
  - DYSPNOEA [None]
